FAERS Safety Report 6801254-4 (Version None)
Quarter: 2010Q2

REPORT INFORMATION
  Report Type: 
  Country: None (occurrence: None)
  Receive Date: 20100629
  Receipt Date: 20100330
  Transmission Date: 20101027
  Serious: Yes (Hospitalization, Other)
  Sender: FDA-Public Use
  Company Number: US-ASTRAZENECA-2006UW08996

PATIENT
  Age: 32 Year
  Sex: Male
  Weight: 129.3 kg

DRUGS (17)
  1. SEROQUEL [Suspect]
     Indication: BIPOLAR DISORDER
     Dosage: 25 TO 600 MG
     Route: 048
     Dates: start: 20040414
  2. SEROQUEL [Suspect]
     Indication: AGITATION
     Dosage: 25 TO 600 MG
     Route: 048
     Dates: start: 20040414
  3. SEROQUEL [Suspect]
     Route: 048
     Dates: start: 20040501, end: 20040901
  4. SEROQUEL [Suspect]
     Route: 048
     Dates: start: 20040501, end: 20040901
  5. RISPERDAL [Suspect]
     Indication: BIPOLAR DISORDER
     Dates: start: 20040301, end: 20040401
  6. RISPERDAL [Suspect]
     Dosage: 0.5 TO 1 MG
     Dates: start: 20040321
  7. ZYPREXA [Suspect]
     Indication: BIPOLAR DISORDER
     Dosage: 10 TO 15 MG
     Route: 048
     Dates: start: 20040101
  8. ZYPREXA [Suspect]
     Dates: start: 20050101, end: 20050301
  9. DEPAKOTE [Concomitant]
     Dosage: 500 MG TO 2000 MG
     Dates: start: 20040321
  10. TRILEPTAL [Concomitant]
     Dates: start: 20040321
  11. LITHIUM CARBONATE [Concomitant]
     Dosage: 300 TO 1500 MG
     Route: 048
     Dates: start: 20040414
  12. WELLBUTRIN SR/WELLBUTRIN [Concomitant]
     Dosage: 150 TO 300 MG
     Route: 048
     Dates: start: 20040331
  13. TOPAMAX [Concomitant]
     Dosage: 25 TO 200 MG
     Dates: start: 20040331
  14. COGENTIN [Concomitant]
     Dosage: 1 TO 2 MG
     Dates: start: 20040715
  15. ADVAIR DISKUS 100/50 [Concomitant]
     Dosage: TWO PUFFS BID
     Dates: start: 20040331
  16. ALBUTEROL [Concomitant]
     Indication: ASTHMA
     Dates: start: 19790101
  17. EFFEXOR XR [Concomitant]
     Dates: start: 20051026

REACTIONS (7)
  - DIABETES MELLITUS [None]
  - DIABETIC KETOACIDOSIS [None]
  - PANCREATITIS [None]
  - REFRACTION DISORDER [None]
  - TYPE 1 DIABETES MELLITUS [None]
  - TYPE 2 DIABETES MELLITUS [None]
  - VISION BLURRED [None]
